FAERS Safety Report 5814542-5 (Version None)
Quarter: 2008Q3

REPORT INFORMATION
  Report Type: 
  Country: None (occurrence: None)
  Receive Date: 20080718
  Receipt Date: 20080708
  Transmission Date: 20090109
  Serious: Yes (Disabling)
  Sender: FDA-Public Use
  Company Number: FR-NOVOPROD-275653

PATIENT
  Age: 55 Year
  Sex: Female
  Weight: 71 kg

DRUGS (12)
  1. NOVOLOG MIX 70/30 [Suspect]
     Indication: DIABETES MELLITUS
     Dosage: 16+12IU, QD
     Dates: start: 20061219, end: 20070106
  2. NOVOLOG MIX 70/30 [Suspect]
     Dosage: 25 IU, QD
  3. NOVORAPID [Suspect]
     Dosage: 8 IU, QD
     Dates: start: 20061201, end: 20070101
  4. HYDREA [Concomitant]
     Dosage: 50 MG, QD
     Dates: start: 19970101
  5. PANOS [Concomitant]
     Dates: start: 19970101
  6. TRANXEN [Concomitant]
     Dates: start: 19970101
  7. CARDEGIC [Concomitant]
     Dosage: 75 MG, QD
     Dates: start: 19970101
  8. DAONIL [Concomitant]
     Dosage: 5 MG, QD
     Dates: start: 19970101
  9. STAGID [Concomitant]
     Dosage: 700 UG, QD
  10. MEDIATOR [Concomitant]
     Dates: end: 20060701
  11. MAGNE B6                           /00869101/ [Concomitant]
  12. GLUCOR [Concomitant]

REACTIONS (1)
  - WEIGHT INCREASED [None]
